FAERS Safety Report 10704404 (Version 1)
Quarter: 2014Q4

REPORT INFORMATION
  Report Type: Report from Study
  Country: US (occurrence: None)
  Receive Date: 20141224
  Receipt Date: 20141224
  Transmission Date: 20150529
  Serious: No
  Sender: FDA-Public Use
  Company Number: CABO-14004831

PATIENT
  Age: 60 Year
  Sex: Male

DRUGS (1)
  1. COMETRIQ [Suspect]
     Active Substance: CABOZANTINIB S-MALATE
     Indication: THYROID CANCER
     Route: 048
     Dates: start: 20140909, end: 20141006

REACTIONS (6)
  - Pain in extremity [None]
  - Skin ulcer [None]
  - Blister [None]
  - Feeling hot [None]
  - Paraesthesia [None]
  - Skin exfoliation [None]
